FAERS Safety Report 6818452 (Version 2)
Quarter: 2012Q4

REPORT INFORMATION
  Report Type: 
  Country: TW (occurrence: TW)
  Receive Date: 20081121
  Receipt Date: 20121113
  Transmission Date: 20130627
  Serious: Yes (Other)
  Sender: FDA-Public Use
  Company Number: TW-ROCHE-597809

PATIENT

DRUGS (2)
  1. PEG-INTERFERON ALFA 2A [Suspect]
     Indication: HEPATITIS C
     Route: 058
  2. RIBAVIRIN [Suspect]
     Indication: HEPATITIS C
     Dosage: 1000 MG DAILY BODY-WEIGHT { 75 KG, 1200 MG } 75 KG
     Route: 048

REACTIONS (1)
  - Renal abscess [Unknown]
